FAERS Safety Report 8603646-X (Version None)
Quarter: 2012Q3

REPORT INFORMATION
  Report Type: 
  Country: None (occurrence: None)
  Receive Date: 20120817
  Receipt Date: 20120808
  Transmission Date: 20120928
  Serious: Yes (Hospitalization, Other)
  Sender: FDA-Public Use
  Company Number: JP-ASTRAZENECA-2012SE27981

PATIENT
  Age: 78 Year
  Sex: Male
  Weight: 52 kg

DRUGS (2)
  1. ZOLADEX [Suspect]
     Indication: PROSTATE CANCER
     Route: 058
     Dates: start: 20120425
  2. BICALUTAMIDE [Concomitant]
     Route: 048
     Dates: start: 20110517

REACTIONS (3)
  - INTESTINAL OBSTRUCTION [None]
  - WOUND DEHISCENCE [None]
  - INTRA-ABDOMINAL HAEMORRHAGE [None]
